FAERS Safety Report 25660237 (Version 1)
Quarter: 2025Q3

REPORT INFORMATION
  Report Type: Spontaneous
  Country: US (occurrence: None)
  Receive Date: 20250807
  Receipt Date: 20250807
  Transmission Date: 20251020
  Serious: Yes (Hospitalization)
  Sender: FDA-CTU
  Company Number: None

PATIENT
  Age: 59 Year
  Sex: Male

DRUGS (6)
  1. TREMFYA [Suspect]
     Active Substance: GUSELKUMAB
     Indication: Psoriasis
     Route: 058
     Dates: start: 20250611
  2. Vraylar 1.5 mg capsule [Concomitant]
  3. Epinephrine 0.15 mg injection [Concomitant]
  4. PREDNISONE [Concomitant]
     Active Substance: PREDNISONE
  5. FUROSEMIDE [Concomitant]
     Active Substance: FUROSEMIDE
  6. cetirizine 10 mg tablet [Concomitant]

REACTIONS (3)
  - Mental status changes [None]
  - Fall [None]
  - Gait disturbance [None]

NARRATIVE: CASE EVENT DATE: 20250717
